FAERS Safety Report 25333689 (Version 1)
Quarter: 2025Q2

REPORT INFORMATION
  Report Type: Report from Study
  Country: US (occurrence: US)
  Receive Date: 20250520
  Receipt Date: 20250520
  Transmission Date: 20250716
  Serious: Yes (Hospitalization, Other)
  Sender: BOEHRINGER INGELHEIM
  Company Number: US-BoehringerIngelheim-2025-BI-027831

PATIENT
  Age: 78 Year
  Sex: Male

DRUGS (1)
  1. JARDIANCE [Suspect]
     Active Substance: EMPAGLIFLOZIN
     Indication: Product used for unknown indication
     Dosage: TAKE ONE TABLET BY MOUTH EVERY MORNING
     Dates: end: 20250509

REACTIONS (4)
  - Abdominal pain [Unknown]
  - Nausea [Unknown]
  - Pancreatic enzymes increased [Unknown]
  - Vomiting [Unknown]
